FAERS Safety Report 6315910-8 (Version None)
Quarter: 2009Q3

REPORT INFORMATION
  Report Type: 
  Country: None (occurrence: None)
  Receive Date: 20090820
  Receipt Date: 20090813
  Transmission Date: 20100115
  Serious: Yes (Life-Threatening, Hospitalization)
  Sender: FDA-Public Use
  Company Number: US-ELI_LILLY_AND_COMPANY-US200908002919

PATIENT
  Sex: Female

DRUGS (1)
  1. HUMATROPE [Suspect]
     Dates: start: 20090805, end: 20090810

REACTIONS (4)
  - DYSPNOEA [None]
  - HEADACHE [None]
  - HYPOTENSION [None]
  - PYREXIA [None]
